FAERS Safety Report 5634409-5 (Version None)
Quarter: 2008Q1

REPORT INFORMATION
  Report Type: 
  Country: None (occurrence: None)
  Receive Date: 20080222
  Receipt Date: 20080219
  Transmission Date: 20080703
  Serious: Yes (Other)
  Sender: FDA-Public Use
  Company Number: DE-BRISTOL-MYERS SQUIBB COMPANY-14034581

PATIENT
  Age: 64 Year
  Sex: Female

DRUGS (2)
  1. ABILIFY [Suspect]
     Indication: DEPRESSION
     Dates: start: 20061201
  2. DULOXETINE HCL [Suspect]
     Indication: DEPRESSION
     Dates: start: 20061201

REACTIONS (1)
  - RETINAL HAEMORRHAGE [None]
